FAERS Safety Report 6057819-3 (Version None)
Quarter: 2009Q1

REPORT INFORMATION
  Report Type: 
  Country: None (occurrence: None)
  Receive Date: 20090129
  Receipt Date: 20090119
  Transmission Date: 20090719
  Serious: Yes (Other)
  Sender: FDA-Public Use
  Company Number: US-ELI_LILLY_AND_COMPANY-US200805000089

PATIENT
  Sex: Female

DRUGS (6)
  1. CYMBALTA [Suspect]
     Indication: BIPOLAR DISORDER
     Dosage: 60 MG, EACH MORNING
     Dates: start: 20070606, end: 20080101
  2. CYMBALTA [Suspect]
     Dosage: 30 MG, QOD
     Dates: start: 20080101, end: 20080101
  3. CYMBALTA [Suspect]
     Dosage: 60 MG, UNK
     Dates: start: 20080101
  4. LAMICTAL [Concomitant]
     Indication: BIPOLAR DISORDER
     Dosage: 150 MG, EACH MORNING
     Dates: start: 20060720
  5. LAMICTAL [Concomitant]
     Dosage: 200 MG, EACH EVENING
     Dates: start: 20060720
  6. PRENATAL VITAMINS                  /01549301/ [Concomitant]

REACTIONS (5)
  - ABSCESS BACTERIAL [None]
  - CAESAREAN SECTION [None]
  - DEPRESSED MOOD [None]
  - DRUG EXPOSURE DURING PREGNANCY [None]
  - SUICIDAL IDEATION [None]
